FAERS Safety Report 11339978 (Version 1)
Quarter: 2015Q3

REPORT INFORMATION
  Report Type: Spontaneous
  Country: US (occurrence: US)
  Receive Date: 20150805
  Receipt Date: 20150805
  Transmission Date: 20151125
  Serious: No
  Sender: FDA-Public Use
  Company Number: US-PAR PHARMACEUTICAL, INC-2015SCPR010419

PATIENT

DRUGS (1)
  1. CALCITONIN [Suspect]
     Active Substance: CALCITONIN
     Indication: MINERAL SUPPLEMENTATION
     Dosage: 1 SPR, OD, IN ALTERNATING NOSTRIL
     Route: 045
     Dates: start: 201501

REACTIONS (3)
  - Product use issue [Unknown]
  - Product odour abnormal [Unknown]
  - No adverse event [Unknown]

NARRATIVE: CASE EVENT DATE: 201501
